FAERS Safety Report 12055387 (Version 1)
Quarter: 2016Q1

REPORT INFORMATION
  Report Type: Spontaneous
  Country: PL (occurrence: PL)
  Receive Date: 20160209
  Receipt Date: 20160209
  Transmission Date: 20160526
  Serious: Yes (Other)
  Sender: FDA-Public Use
  Company Number: PHHY2016PL014611

PATIENT
  Sex: Female

DRUGS (1)
  1. BROMERGON [Suspect]
     Active Substance: BROMOCRIPTINE MESYLATE
     Indication: PRODUCT USED FOR UNKNOWN INDICATION
     Route: 065

REACTIONS (19)
  - Gingival bleeding [Unknown]
  - Seizure [Unknown]
  - Stress [Unknown]
  - Dry skin [Unknown]
  - Somnolence [Unknown]
  - Anxiety [Unknown]
  - Appetite disorder [Unknown]
  - Nightmare [Unknown]
  - Asthenia [Unknown]
  - Dysgeusia [Unknown]
  - Delusion [Unknown]
  - Toothache [Unknown]
  - Memory impairment [Unknown]
  - Constipation [Unknown]
  - Blood pressure decreased [Unknown]
  - Confusional state [Unknown]
  - Affect lability [Unknown]
  - Libido increased [Unknown]
  - Nausea [Unknown]

NARRATIVE: CASE EVENT DATE: 201510
